FAERS Safety Report 20524192 (Version 1)
Quarter: 2022Q1

REPORT INFORMATION
  Report Type: Spontaneous
  Country: US (occurrence: US)
  Receive Date: 20220228
  Receipt Date: 20220228
  Transmission Date: 20220423
  Serious: Yes (Other)
  Sender: FDA-Public Use
  Company Number: US-ABBVIE-22K-163-4292182-00

PATIENT
  Sex: Female

DRUGS (1)
  1. CREON [Suspect]
     Active Substance: PANCRELIPASE AMYLASE\PANCRELIPASE LIPASE\PANCRELIPASE PROTEASE
     Indication: Pancreatic carcinoma
     Route: 048

REACTIONS (9)
  - Lung neoplasm malignant [Unknown]
  - Inguinal hernia [Unknown]
  - Terminal state [Unknown]
  - Cataract [Unknown]
  - Thrombosis [Unknown]
  - Diarrhoea [Unknown]
  - Constipation [Unknown]
  - Unevaluable event [Unknown]
  - Product use complaint [Unknown]

NARRATIVE: CASE EVENT DATE: 20200101
